FAERS Safety Report 15128363 (Version 1)
Quarter: 2018Q3

REPORT INFORMATION
  Report Type: Spontaneous
  Country: US (occurrence: US)
  Receive Date: 20180711
  Receipt Date: 20180711
  Transmission Date: 20181010
  Serious: Yes (Hospitalization, Other)
  Sender: FDA-Public Use
  Company Number: US-GBPHLPEH-2018-PEL-003486

PATIENT

DRUGS (12)
  1. MIDAZOLAM [Concomitant]
     Active Substance: MIDAZOLAM HYDROCHLORIDE
     Indication: INDUCTION OF ANAESTHESIA
     Dosage: 2 MG, UNK
     Route: 065
  2. CISATRACURIUM. [Concomitant]
     Active Substance: CISATRACURIUM
     Indication: MAINTENANCE OF ANAESTHESIA
     Dosage: 36 MG OVER 436 MIN
     Route: 065
  3. ISOFLURANE, USP (HUMAN) [Suspect]
     Active Substance: ISOFLURANE
     Indication: MAINTENANCE OF ANAESTHESIA
     Dosage: BETWEEN 1.0% AND 1.5% THROUGHOUT THE SURGERY
  4. PROPOFOL. [Concomitant]
     Active Substance: PROPOFOL
     Indication: INDUCTION OF ANAESTHESIA
     Dosage: 120 MG, UNK
  5. THYMOGLOBULIN [Concomitant]
     Active Substance: LAPINE T-LYMPHOCYTE IMMUNE GLOBULIN
     Indication: PROPHYLAXIS AGAINST TRANSPLANT REJECTION
     Dosage: UNK
     Route: 065
  6. FENTANYL. [Concomitant]
     Active Substance: FENTANYL
     Indication: INDUCTION OF ANAESTHESIA
     Dosage: 250 ?G, UNK
     Route: 065
  7. METHYLPREDNISOLONE. [Concomitant]
     Active Substance: METHYLPREDNISOLONE
     Indication: PROPHYLAXIS AGAINST TRANSPLANT REJECTION
     Dosage: 500 MG, UNK
     Route: 065
  8. MIDAZOLAM [Concomitant]
     Active Substance: MIDAZOLAM HYDROCHLORIDE
     Dosage: 0.25?0.5 MG/H
     Route: 065
  9. CISATRACURIUM. [Concomitant]
     Active Substance: CISATRACURIUM
     Dosage: BOLUSES AS NEEDED
     Route: 065
  10. FENTANYL. [Concomitant]
     Active Substance: FENTANYL
     Dosage: BOLUSES AS NEEDED
     Route: 065
  11. PROPOFOL. [Concomitant]
     Active Substance: PROPOFOL
     Dosage: 50?100 MCG/KG/MIN
  12. HYDROMORPHONE [Concomitant]
     Active Substance: HYDROMORPHONE
     Indication: MAINTENANCE OF ANAESTHESIA
     Dosage: 1 MG, UNK
     Route: 065

REACTIONS (5)
  - Acute hepatic failure [Recovered/Resolved]
  - Encephalopathy [Recovered/Resolved]
  - Metabolic acidosis [Recovered/Resolved]
  - Lethargy [Recovered/Resolved]
  - Urine output decreased [Recovered/Resolved]
